FAERS Safety Report 8309534-0 (Version None)
Quarter: 2012Q2

REPORT INFORMATION
  Report Type: 
  Country: None (occurrence: None)
  Receive Date: 20120425
  Receipt Date: 20120423
  Transmission Date: 20120825
  Serious: Yes (Other)
  Sender: FDA-Public Use
  Company Number: US-PFIZER INC-2012100144

PATIENT
  Sex: Female
  Weight: 79.365 kg

DRUGS (1)
  1. LYRICA [Suspect]
     Indication: MIGRAINE
     Dosage: 100 MG, 3X/DAY
     Dates: start: 20050101, end: 20060101

REACTIONS (1)
  - WEIGHT INCREASED [None]
